FAERS Safety Report 9394590 (Version 1)
Quarter: 2013Q3

REPORT INFORMATION
  Report Type: Spontaneous
  Country: US (occurrence: None)
  Receive Date: 20130709
  Receipt Date: 20130709
  Transmission Date: 20140515
  Serious: Yes (Other)
  Sender: FDA-Public Use
  Company Number: None

PATIENT
  Age: 75 Year
  Sex: Male

DRUGS (7)
  1. ATORVASTATIN CALCIUM [Suspect]
     Indication: BLOOD CHOLESTEROL INCREASED
     Dosage: 1 PILL ONCE @ BEDTIME MOUTH
     Route: 048
     Dates: start: 20130122, end: 20130523
  2. LISINOPRIL [Concomitant]
  3. FLONAX [Concomitant]
  4. ASPIRIN [Concomitant]
  5. VIT C [Concomitant]
  6. SELENIUM [Concomitant]
  7. ZINC [Concomitant]

REACTIONS (4)
  - Pain in extremity [None]
  - Asthenia [None]
  - Fatigue [None]
  - Gait disturbance [None]
